FAERS Safety Report 12176619 (Version 1)
Quarter: 2016Q1

REPORT INFORMATION
  Report Type: Spontaneous
  Country: US (occurrence: US)
  Receive Date: 20160314
  Receipt Date: 20160314
  Transmission Date: 20160526
  Serious: No
  Sender: FDA-Public Use
  Company Number: US-AKORN PHARMACEUTICALS-2015AKN00454

PATIENT
  Sex: Male

DRUGS (2)
  1. MYORISAN [Suspect]
     Active Substance: ISOTRETINOIN
     Dosage: UNK MG, UNK
     Dates: start: 20150604, end: 2015
  2. MYORISAN [Suspect]
     Active Substance: ISOTRETINOIN
     Dosage: UNK MG, UNK
     Dates: start: 20150324, end: 2015

REACTIONS (2)
  - Headache [Recovered/Resolved]
  - Visual impairment [Recovered/Resolved]

NARRATIVE: CASE EVENT DATE: 2015
